FAERS Safety Report 21832764 (Version 3)
Quarter: 2023Q2

REPORT INFORMATION
  Report Type: Spontaneous
  Country: US (occurrence: US)
  Receive Date: 20230106
  Receipt Date: 20230425
  Transmission Date: 20230722
  Serious: No
  Sender: FDA-Public Use
  Company Number: US-ALLERGAN-2237037US

PATIENT
  Age: 42 Year
  Sex: Female

DRUGS (2)
  1. QULIPTA [Suspect]
     Active Substance: ATOGEPANT
     Indication: Product used for unknown indication
     Dosage: UNK
     Dates: start: 20221027
  2. QULIPTA [Suspect]
     Active Substance: ATOGEPANT
     Dosage: UNK
     Dates: end: 20221025

REACTIONS (4)
  - Therapy interrupted [Unknown]
  - Brain fog [Unknown]
  - Aura [Unknown]
  - Migraine [Unknown]

NARRATIVE: CASE EVENT DATE: 20221025
